FAERS Safety Report 7337742-4 (Version None)
Quarter: 2011Q1

REPORT INFORMATION
  Report Type: 
  Country: None (occurrence: None)
  Receive Date: 20110210
  Receipt Date: 20101102
  Transmission Date: 20110831
  Serious: Yes (Other)
  Sender: FDA-Public Use
  Company Number: 1000017145

PATIENT
  Age: 29 Year
  Sex: Female

DRUGS (8)
  1. ZANAFLEX (TIZANIDINE HYDROCHLORIDE) (TIZANIDINE HYDROCHLORIDE) [Concomitant]
  2. SAVELLA [Suspect]
     Dosage: SEE IMAGE
     Route: 048
     Dates: start: 20101014, end: 20101017
  3. SAVELLA [Suspect]
     Dosage: SEE IMAGE
     Route: 048
     Dates: start: 20101012, end: 20101013
  4. SAVELLA [Suspect]
     Dosage: SEE IMAGE
     Route: 048
     Dates: start: 20101026
  5. SAVELLA [Suspect]
     Dosage: SEE IMAGE
     Route: 048
     Dates: start: 20101018, end: 20101025
  6. ELAVIL (AMITRIPTYLINE) (AMITRIPTYLINE) [Concomitant]
  7. PERCOCET (OXYCODONE, ACETAMINOPHEN) (OXYCODONE, ACETAMINOPHEN) [Concomitant]
  8. BENADRYL (DIPHENHYDRAMINE) (DIPHENHYDRAMINE) [Concomitant]

REACTIONS (4)
  - BLOOD PRESSURE INCREASED [None]
  - TREMOR [None]
  - DIZZINESS [None]
  - MIGRAINE [None]
